FAERS Safety Report 11128640 (Version 1)
Quarter: 2015Q2

REPORT INFORMATION
  Report Type: Spontaneous
  Country: None (occurrence: None)
  Receive Date: 20150520
  Receipt Date: 20150520
  Transmission Date: 20150821
  Serious: Yes (Other)
  Sender: FDA-Public Use
  Company Number: None

PATIENT
  Age: 50 Year
  Sex: Female
  Weight: 77.3 kg

DRUGS (1)
  1. METHYLPHENIDATE 20MG MALLINCKRODT [Suspect]
     Active Substance: METHYLPHENIDATE
     Indication: ATTENTION DEFICIT/HYPERACTIVITY DISORDER
     Dosage: 20 MG 2 TO 3 X A DAY
     Dates: start: 201309

REACTIONS (7)
  - Product substitution issue [None]
  - Head titubation [None]
  - Disturbance in attention [None]
  - Drug ineffective [None]
  - Tremor [None]
  - Fatigue [None]
  - Product quality issue [None]

NARRATIVE: CASE EVENT DATE: 201409
